FAERS Safety Report 5829143-2 (Version None)
Quarter: 2008Q3

REPORT INFORMATION
  Report Type: 
  Country: None (occurrence: None)
  Receive Date: 20080731
  Receipt Date: 20080716
  Transmission Date: 20090109
  Serious: Yes (Other)
  Sender: FDA-Public Use
  Company Number: GB-GENENTECH-263916

PATIENT
  Sex: Female

DRUGS (8)
  1. XOLAIR [Suspect]
     Indication: ASTHMA
     Dosage: 150 MG, UNK
     Route: 030
     Dates: start: 20080304
  2. XOLAIR [Suspect]
     Dosage: 150 MG, UNK
     Route: 030
     Dates: start: 20080403
  3. XOLAIR [Suspect]
     Dosage: 150 MG, UNK
     Route: 030
     Dates: start: 20080501
  4. XOLAIR [Suspect]
     Dosage: 150 MG, UNK
     Route: 030
     Dates: start: 20080529, end: 20080529
  5. BRICANYL [Concomitant]
     Indication: DRUG USE FOR UNKNOWN INDICATION
  6. PULMICORT-100 [Concomitant]
     Indication: DRUG USE FOR UNKNOWN INDICATION
     Dosage: UNK
  7. PREDNISONE [Concomitant]
     Indication: DRUG USE FOR UNKNOWN INDICATION
  8. ATROVENT [Concomitant]
     Indication: DRUG USE FOR UNKNOWN INDICATION

REACTIONS (3)
  - ANAPHYLACTOID REACTION [None]
  - DIARRHOEA [None]
  - NAUSEA [None]
